FAERS Safety Report 6234507-1 (Version None)
Quarter: 2009Q2

REPORT INFORMATION
  Report Type: 
  Country: None (occurrence: None)
  Receive Date: 20090618
  Receipt Date: 20081205
  Transmission Date: 20091009
  Serious: No
  Sender: FDA-Public Use
  Company Number: US-BRISTOL-MYERS SQUIBB COMPANY-14433304

PATIENT
  Age: 91 Year
  Sex: Male
  Weight: 77 kg

DRUGS (15)
  1. SINEMET [Interacting]
     Indication: PARKINSON'S DISEASE
     Dosage: 1 DF =  25MG/100MG,2 TABS
     Route: 048
     Dates: start: 19940101, end: 20081003
  2. AZILECT [Interacting]
     Indication: PARKINSON'S DISEASE
     Route: 048
     Dates: start: 20080901
  3. LIALDA [Suspect]
     Indication: COLITIS
     Route: 048
     Dates: start: 20081002
  4. MULTI-VITAMIN [Concomitant]
  5. WARFARIN SODIUM [Concomitant]
     Dates: start: 19980101
  6. K-DUR [Concomitant]
     Dates: start: 19980101
  7. BUMEX [Concomitant]
     Dates: start: 19980101
  8. XOPENEX [Concomitant]
     Dates: start: 20040101
  9. LEXAPRO [Concomitant]
     Dates: start: 20040101
  10. NITROGLYCERIN [Concomitant]
     Dates: start: 20050101
  11. LYRICA [Concomitant]
     Dates: start: 20060101
  12. VITAMIN B-12 [Concomitant]
     Dates: start: 20070101
  13. TIGAN [Concomitant]
     Dates: start: 20080901
  14. PREVACID [Concomitant]
     Dates: start: 20080901
  15. REQUIP [Concomitant]
     Dates: start: 20080901

REACTIONS (2)
  - DRUG INTERACTION [None]
  - DYSKINESIA [None]
